FAERS Safety Report 10545951 (Version 1)
Quarter: 2014Q4

REPORT INFORMATION
  Report Type: Report from Study
  Country: US (occurrence: US)
  Receive Date: 20141027
  Receipt Date: 20141027
  Transmission Date: 20150529
  Serious: Yes (Other)
  Sender: FDA-Public Use
  Company Number: US-GILEAD-2014-0119649

PATIENT
  Age: 63 Year
  Sex: Female

DRUGS (1)
  1. SOFOSBUVIR [Suspect]
     Active Substance: SOFOSBUVIR
     Indication: CHRONIC HEPATITIS C
     Dosage: 400 MG, UNK
     Route: 065
     Dates: start: 20141015

REACTIONS (5)
  - Fatigue [Unknown]
  - Feeding disorder [Unknown]
  - Reproductive tract disorder [Unknown]
  - Abdominal pain upper [Unknown]
  - Depression [Unknown]

NARRATIVE: CASE EVENT DATE: 20141015
